FAERS Safety Report 7428876-4 (Version None)
Quarter: 2011Q2

REPORT INFORMATION
  Report Type: 
  Country: None (occurrence: None)
  Receive Date: 20110415
  Receipt Date: 20110415
  Transmission Date: 20111010
  Serious: Yes (Other)
  Sender: FDA-Public Use
  Company Number: None

PATIENT
  Age: 42 Year
  Sex: Female
  Weight: 109.7705 kg

DRUGS (1)
  1. CALCIUM CHLORIDE 10% [Suspect]
     Indication: HYPOCALCAEMIA
     Dosage: 2000 MG OR 20 ML ONCE IV
     Route: 042
     Dates: start: 20110403, end: 20110403

REACTIONS (6)
  - HYPOAESTHESIA [None]
  - INFUSION RELATED REACTION [None]
  - CHEST PAIN [None]
  - CRYING [None]
  - FLUSHING [None]
  - BURNING SENSATION [None]
